FAERS Safety Report 17693136 (Version 1)
Quarter: 2020Q2

REPORT INFORMATION
  Report Type: Spontaneous
  Country: US (occurrence: US)
  Receive Date: 20200422
  Receipt Date: 20200422
  Transmission Date: 20200714
  Serious: Yes (Hospitalization)
  Sender: FDA-Public Use
  Company Number: US-TEVA-2020-US-1224588

PATIENT
  Age: 55 Year
  Sex: Male

DRUGS (6)
  1. IBUPROFEN. [Suspect]
     Active Substance: IBUPROFEN
     Indication: PAIN
  2. DARBEPOETIN [Suspect]
     Active Substance: DARBEPOETIN ALFA
     Indication: HAEMOGLOBIN ABNORMAL
     Route: 058
  3. FOLIC ACID. [Suspect]
     Active Substance: FOLIC ACID
     Indication: HAEMOGLOBIN ABNORMAL
     Route: 065
  4. IBUPROFEN. [Suspect]
     Active Substance: IBUPROFEN
     Indication: MYALGIA
     Route: 065
  5. VITAMIN B12 [Suspect]
     Active Substance: CYANOCOBALAMIN
     Indication: HAEMOGLOBIN ABNORMAL
     Route: 065
  6. IRON SUCROSE [Suspect]
     Active Substance: IRON SUCROSE
     Indication: HAEMOGLOBIN ABNORMAL
     Route: 042

REACTIONS (8)
  - Gastric ulcer [Recovering/Resolving]
  - Melaena [Recovered/Resolved]
  - Fall [Recovering/Resolving]
  - Drug ineffective [Unknown]
  - Anaemia [Recovering/Resolving]
  - Syncope [Recovering/Resolving]
  - Gastrointestinal haemorrhage [Recovered/Resolved]
  - Bedridden [Recovering/Resolving]
